FAERS Safety Report 9507920 (Version 1)
Quarter: 2013Q1

REPORT INFORMATION
  Report Type: Spontaneous
  Country: US (occurrence: None)
  Receive Date: 20130305
  Receipt Date: 20130305
  Transmission Date: 20140127
  Serious: Yes (Other)
  Sender: FDA-Public Use
  Company Number: 163-21880-12021548

PATIENT
  Age: 73 Year
  Sex: Male
  Weight: 77.11 kg

DRUGS (7)
  1. REVLIMID (LENALIDOMIDE) (25 MILLIGRAM, CAPSULES) [Suspect]
     Indication: PLASMA CELL MYELOMA
     Dosage: QD X 21 DAYS
     Route: 048
     Dates: start: 20100808
  2. BABY ASPIRIN (ACETYLSALICYLIC ACID) [Concomitant]
  3. CORAL CALCIUM (OS-CAL) [Concomitant]
  4. FENTANYL (FENTANYL) [Concomitant]
  5. FISH OIL (FISH OIL) [Concomitant]
  6. LIPITOR (ATORVASTATIN) [Concomitant]
  7. VITAMINS [Concomitant]

REACTIONS (4)
  - Cataract [None]
  - Vision blurred [None]
  - Oedema peripheral [None]
  - Tooth infection [None]
